FAERS Safety Report 13024354 (Version 1)
Quarter: 2016Q4

REPORT INFORMATION
  Report Type: Spontaneous
  Country: NL (occurrence: NL)
  Receive Date: 20161213
  Receipt Date: 20161213
  Transmission Date: 20170207
  Serious: Yes (Hospitalization)
  Sender: FDA-Public Use
  Company Number: PHHY2016NL166025

PATIENT
  Age: 79 Year
  Sex: Female

DRUGS (1)
  1. AMOXICILLIN SANDOZ [Suspect]
     Active Substance: AMOXICILLIN
     Indication: COUGH
     Dosage: 500 MG, TID 3DD1
     Route: 048
     Dates: start: 20160912, end: 20160918

REACTIONS (4)
  - Dehydration [Recovered/Resolved]
  - Oral mucosal blistering [Recovered/Resolved]
  - Rash generalised [Recovered/Resolved]
  - Hyperpyrexia [Recovered/Resolved]

NARRATIVE: CASE EVENT DATE: 20160918
